FAERS Safety Report 8523636-5 (Version None)
Quarter: 2012Q3

REPORT INFORMATION
  Report Type: 
  Country: None (occurrence: None)
  Receive Date: 20120709
  Receipt Date: 20120623
  Transmission Date: 20120928
  Serious: Yes (Hospitalization)
  Sender: FDA-Public Use
  Company Number: 2012AP001967

PATIENT
  Age: 42 Year
  Sex: Male

DRUGS (3)
  1. GABAPENTIN [Suspect]
     Indication: COMPLEX REGIONAL PAIN SYNDROME
  2. PREGABALIN [Suspect]
     Indication: COMPLEX REGIONAL PAIN SYNDROME
  3. TRAMADOL HYDROCHLORIDE [Suspect]
     Indication: COMPLEX REGIONAL PAIN SYNDROME

REACTIONS (5)
  - DRUG INEFFECTIVE [None]
  - FEELING ABNORMAL [None]
  - SOMNOLENCE [None]
  - OFF LABEL USE [None]
  - ILEUS [None]
